FAERS Safety Report 19821414 (Version 1)
Quarter: 2021Q3

REPORT INFORMATION
  Report Type: Spontaneous
  Country: US (occurrence: US)
  Receive Date: 20210913
  Receipt Date: 20210913
  Transmission Date: 20211014
  Serious: No
  Sender: FDA-Public Use
  Company Number: US-GLENMARK PHARMACEUTICALS-2020GMK050583

PATIENT

DRUGS (1)
  1. DROSPIRENONE AND ETHINYL ESTRADIOL TABLETS USP, 3 MG/0.02 MG [Suspect]
     Active Substance: DROSPIRENONE\ETHINYL ESTRADIOL
     Indication: HEAVY MENSTRUAL BLEEDING
     Dosage: 1 DOSAGE FORM, OD
     Route: 048
     Dates: start: 20201026

REACTIONS (2)
  - Product use in unapproved indication [Unknown]
  - Vaginal haemorrhage [Not Recovered/Not Resolved]

NARRATIVE: CASE EVENT DATE: 20201026
